FAERS Safety Report 24270356 (Version 1)
Quarter: 2024Q3

REPORT INFORMATION
  Report Type: Spontaneous
  Country: ES (occurrence: None)
  Receive Date: 20240830
  Receipt Date: 20240830
  Transmission Date: 20241017
  Serious: Yes (Hospitalization)
  Sender: ASTRAZENECA
  Company Number: 2024A196388

PATIENT
  Sex: Male

DRUGS (17)
  1. QUETIAPINE [Suspect]
     Active Substance: QUETIAPINE
     Indication: Delirium
     Dates: start: 20240624, end: 20240629
  2. QUETIAPINE [Suspect]
     Active Substance: QUETIAPINE
     Indication: Insomnia
     Dates: start: 20240624, end: 20240629
  3. QUETIAPINE [Suspect]
     Active Substance: QUETIAPINE
     Indication: Delirium
     Dosage: NOCTURNAL QUETIAPINE WAS RESTARTED
     Dates: start: 20240709, end: 20240711
  4. QUETIAPINE [Suspect]
     Active Substance: QUETIAPINE
     Indication: Insomnia
     Dosage: NOCTURNAL QUETIAPINE WAS RESTARTED
     Dates: start: 20240709, end: 20240711
  5. CLONIDINE [Suspect]
     Active Substance: CLONIDINE
     Dates: start: 20240620, end: 20240621
  6. HALOPERIDOL [Suspect]
     Active Substance: HALOPERIDOL
     Indication: Agitation
     Dates: start: 20240624, end: 20240628
  7. AMIODARONE [Concomitant]
     Active Substance: AMIODARONE
     Dates: start: 20240620, end: 20240717
  8. AMIODARONE [Concomitant]
     Active Substance: AMIODARONE
     Dates: start: 20240627, end: 20240717
  9. ENOXAPARIN SODIUM [Concomitant]
     Active Substance: ENOXAPARIN SODIUM
     Dates: start: 20240616, end: 20240701
  10. ENOXAPARIN SODIUM [Concomitant]
     Active Substance: ENOXAPARIN SODIUM
     Dates: start: 20240704
  11. METHYLPREDNISOLONE [Concomitant]
     Active Substance: METHYLPREDNISOLONE
     Dosage: 125MG/8H EV
  12. METHYLPREDNISOLONE [Concomitant]
     Active Substance: METHYLPREDNISOLONE
     Dates: start: 20240704
  13. MYCOPHENOLATE MOFETIL [Concomitant]
     Active Substance: MYCOPHENOLATE MOFETIL
     Dosage: 500MG/12H
  14. TACROLIMUS [Concomitant]
     Active Substance: TACROLIMUS
     Dates: start: 202406
  15. ONDANSETRON [Concomitant]
     Active Substance: ONDANSETRON
     Dates: start: 202406
  16. ACETAMINOPHEN [Concomitant]
     Active Substance: ACETAMINOPHEN
  17. DEXMEDETOMIDINE [Concomitant]
     Active Substance: DEXMEDETOMIDINE
     Indication: Atrial fibrillation

REACTIONS (3)
  - Hepatocellular injury [Unknown]
  - Pulmonary embolism [Unknown]
  - Off label use [Recovered/Resolved]

NARRATIVE: CASE EVENT DATE: 20240624
